FAERS Safety Report 6110141-9 (Version None)
Quarter: 2009Q1

REPORT INFORMATION
  Report Type: 
  Country: None (occurrence: None)
  Receive Date: 20090310
  Receipt Date: 20090303
  Transmission Date: 20090719
  Serious: Yes (Other)
  Sender: FDA-Public Use
  Company Number: BR-ASTRAZENECA-2009UW05831

PATIENT
  Age: 84 Year
  Sex: Male

DRUGS (3)
  1. ATACAND [Suspect]
     Indication: HYPERTENSION
     Route: 048
     Dates: start: 20081101, end: 20090215
  2. ATACAND [Suspect]
     Route: 048
  3. GLIFAGE [Concomitant]

REACTIONS (2)
  - BLOOD PRESSURE INCREASED [None]
  - THROMBOSIS [None]
